FAERS Safety Report 6384088-7 (Version None)
Quarter: 2009Q4

REPORT INFORMATION
  Report Type: 
  Country: None (occurrence: None)
  Receive Date: 20091001
  Receipt Date: 20090923
  Transmission Date: 20100525
  Serious: Yes (Hospitalization)
  Sender: FDA-Public Use
  Company Number: US-PFIZER INC-2009159649

PATIENT
  Sex: Female

DRUGS (6)
  1. CELEBREX [Suspect]
     Indication: PAIN
     Dosage: 200 MG, 2X/DAY
     Route: 048
     Dates: start: 20000203, end: 20030606
  2. BEXTRA [Suspect]
     Dosage: 20 MG, 1X/DAY
     Dates: start: 20030610, end: 20050101
  3. ACIPHEX [Concomitant]
     Dosage: 20 MG, 1X/DAY
     Route: 048
  4. VALIUM [Concomitant]
     Indication: ANXIETY
     Dosage: 5 MG, AS NEEDED
  5. FOSAMAX [Concomitant]
     Dosage: 70 MG, WEEKLY
     Route: 048
  6. MULTI-VITAMINS [Concomitant]

REACTIONS (1)
  - CEREBROVASCULAR ACCIDENT [None]
